FAERS Safety Report 6022494-0 (Version None)
Quarter: 2008Q4

REPORT INFORMATION
  Report Type: 
  Country: None (occurrence: None)
  Receive Date: 20081230
  Receipt Date: 20081218
  Transmission Date: 20090506
  Serious: Yes (Other)
  Sender: FDA-Public Use
  Company Number: PHHY2008GB32610

PATIENT

DRUGS (1)
  1. MIACALCIN [Suspect]
     Dosage: UNK
     Route: 045

REACTIONS (1)
  - LOSS OF CONSCIOUSNESS [None]
